FAERS Safety Report 23314655 (Version 1)
Quarter: 2023Q4

REPORT INFORMATION
  Report Type: Spontaneous
  Country: GB (occurrence: GB)
  Receive Date: 20231219
  Receipt Date: 20231219
  Transmission Date: 20240109
  Serious: Yes (Hospitalization)
  Sender: FDA-Public Use
  Company Number: GB-EUSA PHARMA (UK) LIMITED-2023GB000026

PATIENT

DRUGS (11)
  1. ISOTRETINOIN [Suspect]
     Active Substance: ISOTRETINOIN
     Indication: Neuroblastoma
     Dosage: REDUCED BY 25 PERCENT, UNK
     Route: 065
     Dates: start: 202212
  2. ISOTRETINOIN [Suspect]
     Active Substance: ISOTRETINOIN
     Dosage: UNK
     Route: 065
     Dates: end: 202212
  3. DINUTUXIMAB BETA [Suspect]
     Active Substance: DINUTUXIMAB BETA
     Indication: Neuroblastoma
     Dosage: CYCLE 1: 7.3 MG (AT 10 MG/ M2)
     Route: 042
     Dates: start: 20221102, end: 20221112
  4. DINUTUXIMAB BETA [Suspect]
     Active Substance: DINUTUXIMAB BETA
     Dosage: CYCLE 2: 7.3 MG (AT 10 MG/ M2)
     Route: 042
     Dates: start: 20221207, end: 20221218
  5. CETIRIZINE [Concomitant]
     Active Substance: CETIRIZINE HYDROCHLORIDE
     Indication: Illness
     Dosage: 2.5 MILLIGRAM, BID
     Route: 048
     Dates: start: 20221110, end: 20230401
  6. CHLORPHENIRAMINE MALEATE [Concomitant]
     Active Substance: CHLORPHENIRAMINE MALEATE
     Indication: Antiallergic therapy
     Dosage: 1 MILLIGRAM, QID
     Route: 048
     Dates: start: 20221110, end: 20230401
  7. COTRIMOXAZOLE [Concomitant]
     Active Substance: SULFAMETHOXAZOLE\TRIMETHOPRIM
     Indication: Fungal infection
     Dosage: 240 MILLIGRAM, BID,  ON SATURDAY AND SUNDAY
     Route: 048
     Dates: start: 20211113
  8. GABAPENTIN [Concomitant]
     Active Substance: GABAPENTIN
     Indication: Analgesic therapy
     Dosage: 180 MILLIGRAM, TID
     Route: 048
     Dates: start: 20221110, end: 20230401
  9. GRANISETRON [Concomitant]
     Active Substance: GRANISETRON
     Indication: Illness
     Dosage: 0.3 MILLIGRAM, TID, (WHEN REQUIRED)
     Route: 048
     Dates: start: 20220109, end: 20230401
  10. LEVOMEPROMAZINE [Concomitant]
     Active Substance: LEVOMEPROMAZINE
     Indication: Illness
     Dosage: 3 MILLIGRAM, BID, (WHEN REQUIRED)
     Route: 048
     Dates: start: 20221110, end: 20230401
  11. MORPHINE SULFATE [Concomitant]
     Active Substance: MORPHINE SULFATE
     Indication: Analgesic therapy
     Dosage: 3.5 MG 6 TIMES A DAY (WHEN REQUIRED)
     Route: 048
     Dates: start: 20211214, end: 20230401

REACTIONS (2)
  - Pyrexia [Recovered/Resolved]
  - Vomiting [Recovered/Resolved]

NARRATIVE: CASE EVENT DATE: 20221220
